FAERS Safety Report 6072887-0 (Version None)
Quarter: 2009Q1

REPORT INFORMATION
  Report Type: 
  Country: None (occurrence: None)
  Receive Date: 20090205
  Receipt Date: 20090131
  Transmission Date: 20090719
  Serious: Yes (Other)
  Sender: FDA-Public Use
  Company Number: 09P-130-0499136-00

PATIENT
  Age: 6 Month
  Sex: Female

DRUGS (5)
  1. SYNAGIS [Suspect]
     Indication: PROPHYLAXIS
     Dosage: (75 MG); (83 MG) ; (80 MG)
     Dates: start: 20081030, end: 20081030
  2. SYNAGIS [Suspect]
     Indication: PROPHYLAXIS
     Dosage: (75 MG); (83 MG) ; (80 MG)
     Dates: start: 20081126, end: 20081126
  3. SYNAGIS [Suspect]
     Indication: PROPHYLAXIS
     Dosage: (75 MG); (83 MG) ; (80 MG)
     Dates: start: 20081222, end: 20081222
  4. VITAMINS NOS (VITAMINS NOS) [Concomitant]
  5. IRON (IRON) [Concomitant]

REACTIONS (3)
  - BRONCHOSPASM [None]
  - DYSPNOEA [None]
  - WEIGHT DECREASED [None]
